FAERS Safety Report 5707349-0 (Version None)
Quarter: 2008Q2

REPORT INFORMATION
  Report Type: 
  Country: None (occurrence: None)
  Receive Date: 20080416
  Receipt Date: 20080317
  Transmission Date: 20081010
  Serious: Yes (Hospitalization)
  Sender: FDA-Public Use
  Company Number: FR-ASTRAZENECA-2008CG00424

PATIENT
  Sex: Female

DRUGS (8)
  1. XYLOCAINE [Suspect]
     Indication: COMPLEX REGIONAL PAIN SYNDROME
     Route: 042
     Dates: start: 20080227, end: 20080227
  2. FONZYLANE [Suspect]
     Indication: COMPLEX REGIONAL PAIN SYNDROME
     Route: 042
     Dates: start: 20080227, end: 20080227
  3. TRILEPTAL [Concomitant]
  4. TRAMADOL HCL [Concomitant]
  5. GRISEFULVINE [Concomitant]
  6. IXPRIM [Concomitant]
  7. ZOLOFT [Concomitant]
  8. PYOSTACINE [Concomitant]

REACTIONS (4)
  - DIZZINESS [None]
  - HEADACHE [None]
  - MALAISE [None]
  - NAUSEA [None]
